FAERS Safety Report 12368237 (Version 1)
Quarter: 2016Q2

REPORT INFORMATION
  Report Type: Spontaneous
  Country: US (occurrence: US)
  Receive Date: 20160513
  Receipt Date: 20160513
  Transmission Date: 20160815
  Serious: No
  Sender: FDA-Public Use
  Company Number: US-JNJFOC-20160406603

PATIENT
  Age: 55 Year
  Sex: Male
  Weight: 72.58 kg

DRUGS (2)
  1. MENS ROGAINE EXTRA STRENGTH [Suspect]
     Active Substance: MINOXIDIL
     Indication: ALOPECIA
     Dosage: 2 FULL DROPPERFULS
     Route: 061
  2. MENS ROGAINE EXTRA STRENGTH [Suspect]
     Active Substance: MINOXIDIL
     Route: 061

REACTIONS (6)
  - Inappropriate schedule of drug administration [Unknown]
  - Hair texture abnormal [Unknown]
  - Wrong technique in product usage process [Unknown]
  - Product label issue [Unknown]
  - Drug effect incomplete [Unknown]
  - Incorrect dose administered [Unknown]
